FAERS Safety Report 6750434-5 (Version None)
Quarter: 2010Q2

REPORT INFORMATION
  Report Type: 
  Country: None (occurrence: None)
  Receive Date: 20100601
  Receipt Date: 20100519
  Transmission Date: 20101027
  Serious: Yes (Other)
  Sender: FDA-Public Use
  Company Number: CA-ELI_LILLY_AND_COMPANY-CA201005007020

PATIENT
  Age: 86 Year
  Sex: Male
  Weight: 70 kg

DRUGS (10)
  1. ZYPREXA ZYDIS [Suspect]
     Indication: AGITATION
     Dosage: 10 MG, OTHER
     Dates: start: 20081123, end: 20081123
  2. FLOMAX [Concomitant]
     Dosage: 0.4 MG, DAILY (1/D)
     Route: 048
  3. POTASSIUM [Concomitant]
     Dosage: 10 MEQ, DAILY (1/D)
     Route: 048
  4. ASPIRIN [Concomitant]
     Dosage: 80 MG, DAILY (1/D)
     Route: 048
  5. METFORMIN HCL [Concomitant]
     Dosage: 500 MG, 3/D
     Route: 048
  6. GLYBURIDE [Concomitant]
     Dosage: 5 MG, 2/D
     Route: 048
  7. FUROSEMIDE [Concomitant]
     Dosage: 20 MG, DAILY (1/D)
     Route: 048
  8. ATIVAN [Concomitant]
     Dosage: 0.5 MG, DAILY (1/D)
  9. SERAX [Concomitant]
     Dosage: 15 MG, DAILY (1/D)
  10. OLANZAPINE [Concomitant]
     Dosage: 2.5 MG, UNK
     Dates: start: 20081101

REACTIONS (1)
  - HYPERSOMNIA [None]
